FAERS Safety Report 8056247-9 (Version None)
Quarter: 2011Q4

REPORT INFORMATION
  Report Type: 
  Country: None (occurrence: None)
  Receive Date: 20111219
  Receipt Date: 20110804
  Transmission Date: 20120403
  Serious: Yes (Other)
  Sender: FDA-Public Use
  Company Number: WAES 1108USA00736

PATIENT
  Age: 76 Year
  Sex: Male
  Weight: 104.7809 kg

DRUGS (6)
  1. METFORMIN [Concomitant]
  2. QUINAPRIL HYDROCHLORIDE [Concomitant]
  3. CARVEDILOL [Concomitant]
  4. JANUVIA [Suspect]
     Indication: TYPE 2 DIABETES MELLITUS
     Dosage: 100 MG/DAILY/PO
     Route: 048
     Dates: start: 20110628, end: 20110701
  5. AMLODIPINE [Concomitant]
  6. AMLODIPINE [Concomitant]

REACTIONS (1)
  - DRUG HYPERSENSITIVITY [None]
